FAERS Safety Report 9317352 (Version 1)
Quarter: 2013Q2

REPORT INFORMATION
  Report Type: Spontaneous
  Country: US (occurrence: US)
  Receive Date: 20130530
  Receipt Date: 20130530
  Transmission Date: 20140414
  Serious: No
  Sender: FDA-Public Use
  Company Number: US-NOVEN-12US004850

PATIENT
  Age: 4 Year
  Sex: Male
  Weight: 21.77 kg

DRUGS (3)
  1. DAYTRANA [Suspect]
     Indication: ATTENTION DEFICIT/HYPERACTIVITY DISORDER
     Dosage: 1/2 20MG PATCH
     Route: 062
     Dates: start: 20120622
  2. RISPERDAL [Concomitant]
     Indication: AGGRESSION
     Dosage: 0.5 MG, UNK
     Route: 048
  3. RISPERDAL [Concomitant]
     Dosage: 0.25 MG, UNK
     Route: 048
     Dates: start: 20120621

REACTIONS (4)
  - Wrong technique in drug usage process [Recovered/Resolved]
  - Off label use [Not Recovered/Not Resolved]
  - Drug prescribing error [Not Recovered/Not Resolved]
  - No adverse event [None]
